FAERS Safety Report 9683855 (Version 2)
Quarter: 2014Q2

REPORT INFORMATION
  Report Type: Spontaneous
  Country: US (occurrence: US)
  Receive Date: 20131112
  Receipt Date: 20140527
  Transmission Date: 20141212
  Serious: No
  Sender: FDA-Public Use
  Company Number: US-BAXTER-2013BAX043304

PATIENT
  Sex: Male
  Weight: 96.5 kg

DRUGS (5)
  1. DIANEAL LOW CALCIUM [Suspect]
     Indication: RENAL FAILURE CHRONIC
     Route: 033
     Dates: start: 20110811
  2. DIANEAL LOW CALCIUM [Suspect]
     Route: 033
     Dates: start: 20110811
  3. DIANEAL LOW CALCIUM [Suspect]
     Indication: RENAL FAILURE CHRONIC
     Route: 033
     Dates: start: 20110811
  4. DIANEAL LOW CALCIUM [Suspect]
     Route: 033
     Dates: start: 20110811
  5. LASIX [Concomitant]
     Indication: RENAL FAILURE CHRONIC
     Route: 048
     Dates: start: 201301

REACTIONS (3)
  - Oedema peripheral [Recovering/Resolving]
  - Peripheral swelling [Recovered/Resolved]
  - Anaemia [Recovered/Resolved]
